FAERS Safety Report 10220510 (Version 2)
Quarter: 2014Q2

REPORT INFORMATION
  Report Type: Spontaneous
  Country: FR (occurrence: FR)
  Receive Date: 20140606
  Receipt Date: 20140617
  Transmission Date: 20141212
  Serious: Yes (Hospitalization)
  Sender: FDA-Public Use
  Company Number: FR-BRISTOL-MYERS SQUIBB COMPANY-20936209

PATIENT
  Age: 41 Year
  Sex: Female

DRUGS (4)
  1. ABILIFY [Suspect]
     Indication: SCHIZOPHRENIA, PARANOID TYPE
     Dosage: DECRSD TO 10MG,5MG,DISCNTD 2 YRS AGO.?RESTD WITH 15MG,NOV13 DECRSD TO 5MG?ONG?DOSE:1/D AT EVE
     Route: 048
  2. ZYPREXA [Concomitant]
     Dates: start: 2012
  3. LEPONEX [Concomitant]
     Dates: start: 2012
  4. SOLIAN [Concomitant]
     Dates: start: 2012

REACTIONS (6)
  - Drug withdrawal syndrome [Not Recovered/Not Resolved]
  - Masked facies [Not Recovered/Not Resolved]
  - Jaw disorder [Not Recovered/Not Resolved]
  - Insomnia [Not Recovered/Not Resolved]
  - Feeling abnormal [Not Recovered/Not Resolved]
  - Muscle contractions involuntary [Not Recovered/Not Resolved]
